FAERS Safety Report 9560045 (Version 3)
Quarter: 2013Q4

REPORT INFORMATION
  Report Type: Spontaneous
  Country: US (occurrence: US)
  Receive Date: 20130927
  Receipt Date: 20131021
  Transmission Date: 20140711
  Serious: No
  Sender: FDA-Public Use
  Company Number: US-PFIZER INC-2013276010

PATIENT
  Age: 73 Year
  Sex: Female
  Weight: 63.49 kg

DRUGS (6)
  1. TOVIAZ [Suspect]
     Indication: URINARY INCONTINENCE
     Dosage: 4 MG, DAILY
     Dates: start: 201309, end: 20130921
  2. ADVIL [Suspect]
     Dosage: 400MG (TWO 200MG CAPSULES) IN EVERY 4 HOURS
     Dates: start: 2013
  3. TRAMADOL HYDROCHLORIDE [Suspect]
     Indication: HEADACHE
     Dosage: 37.5 MG AS NEEDED
     Dates: start: 2013
  4. TYLENOL [Suspect]
     Indication: HEADACHE
     Dosage: 325MG AS NEEDED
     Dates: start: 2013
  5. MYRBETRIQ [Suspect]
     Indication: URINARY INCONTINENCE
     Dosage: UNK
     Dates: start: 2013, end: 2013
  6. ARMOUR THYROID [Concomitant]
     Indication: HYPOTHYROIDISM
     Dosage: 90 MG, DAILY
     Route: 048
     Dates: start: 1997

REACTIONS (4)
  - Headache [Recovered/Resolved]
  - Dry mouth [Recovered/Resolved]
  - Constipation [Recovered/Resolved]
  - Drug ineffective [Unknown]
